FAERS Safety Report 7060845-9 (Version None)
Quarter: 2010Q4

REPORT INFORMATION
  Report Type: 
  Country: None (occurrence: None)
  Receive Date: 20101025
  Receipt Date: 20101014
  Transmission Date: 20110411
  Serious: Yes (Hospitalization)
  Sender: FDA-Public Use
  Company Number: US-WATSON-2010-13728

PATIENT
  Sex: Male
  Weight: 77.098 kg

DRUGS (2)
  1. PRIMIDONE [Suspect]
     Indication: CONVULSION
     Dosage: 1 TABLET 4 TIMES DAILY
     Route: 048
     Dates: start: 19520101
  2. DILANTIN [Suspect]
     Indication: CONVULSION
     Dosage: 1 CAPSULE 4 TIMES DAILY
     Route: 048
     Dates: start: 19520101

REACTIONS (3)
  - COMA [None]
  - GRAND MAL CONVULSION [None]
  - LOSS OF CONSCIOUSNESS [None]
